FAERS Safety Report 11444724 (Version 1)
Quarter: 2015Q3

REPORT INFORMATION
  Report Type: Spontaneous
  Country: GB (occurrence: None)
  Receive Date: 20150831
  Receipt Date: 20150831
  Transmission Date: 20151125
  Serious: Yes (Hospitalization)
  Sender: FDA-Public Use
  Company Number: CC400267749

PATIENT
  Age: 80 Year
  Sex: Female
  Weight: 88 kg

DRUGS (18)
  1. DOVONEX [Concomitant]
     Active Substance: CALCIPOTRIENE
  2. LOSARTAN. [Concomitant]
     Active Substance: LOSARTAN
  3. AMITRIPTYLINE HYDROCHLORIDE. [Concomitant]
     Active Substance: AMITRIPTYLINE HYDROCHLORIDE
  4. ATORVASTATIN [Concomitant]
     Active Substance: ATORVASTATIN
  5. CLOPIDOGREL [Concomitant]
     Active Substance: CLOPIDOGREL BISULFATE
  6. PARACETAMOL [Concomitant]
     Active Substance: ACETAMINOPHEN
  7. LEVOTHYROXINE. [Concomitant]
     Active Substance: LEVOTHYROXINE
  8. RAMIPRIL. [Concomitant]
     Active Substance: RAMIPRIL
  9. CODEINE PHOSPHATE [Concomitant]
     Active Substance: CODEINE PHOSPHATE
  10. EPADERM [Concomitant]
     Active Substance: MINERAL OIL\PETROLATUM\WAX, EMULSIFYING
  11. LEVEMIR [Concomitant]
     Active Substance: INSULIN DETEMIR
  12. DERMOL [Concomitant]
     Active Substance: BENZALKONIUM CHLORIDE\CHLORHEXIDINE HYDROCHLORIDE\ISOPROPYL MYRISTATE\PARAFFIN
  13. MUCOPOLYSACCHARIDES NOS [Concomitant]
     Active Substance: GLYCOSAMINOGLYCANS
  14. NOVORAPID [Concomitant]
     Active Substance: INSULIN ASPART
  15. PHENOXYMETHYLPENCILLIN [Concomitant]
  16. BENDROFLUMETHIAZIDE [Concomitant]
     Active Substance: BENDROFLUMETHIAZIDE
  17. BETAMETHASONE VALERATE. [Concomitant]
     Active Substance: BETAMETHASONE VALERATE
  18. METRONIDAZOLE. [Suspect]
     Active Substance: METRONIDAZOLE
     Indication: CELLULITIS

REACTIONS (2)
  - Lip swelling [None]
  - Peripheral swelling [None]
